FAERS Safety Report 10659228 (Version 1)
Quarter: 2014Q4

REPORT INFORMATION
  Report Type: Spontaneous
  Country: US (occurrence: None)
  Receive Date: 20141216
  Receipt Date: 20141216
  Transmission Date: 20150529
  Serious: Yes (Disabling)
  Sender: FDA-Public Use
  Company Number: None

PATIENT
  Age: 42 Year
  Sex: Female
  Weight: 58.97 kg

DRUGS (1)
  1. GILENYA [Suspect]
     Active Substance: FINGOLIMOD HYDROCHLORIDE
     Dosage: 1  ONCE DAILY TAKEN BY MOUTH
     Route: 048

REACTIONS (9)
  - Alopecia [None]
  - Malaise [None]
  - Diarrhoea [None]
  - Staphylococcal infection [None]
  - Dysgeusia [None]
  - Headache [None]
  - Bronchitis [None]
  - Hypophagia [None]
  - Oral candidiasis [None]

NARRATIVE: CASE EVENT DATE: 20140824
